FAERS Safety Report 7427248-6 (Version None)
Quarter: 2011Q2

REPORT INFORMATION
  Report Type: 
  Country: None (occurrence: None)
  Receive Date: 20110420
  Receipt Date: 20110412
  Transmission Date: 20111010
  Serious: No
  Sender: FDA-Public Use
  Company Number: US-PFIZER INC-2011080700

PATIENT
  Age: 15 Year
  Sex: Female

DRUGS (2)
  1. RISPERDAL [Suspect]
     Dosage: UNK DOSE AT BEDTIME
  2. EFFEXOR [Suspect]
     Dosage: 150 MG IN THE MORNING AND 75 MG
     Dates: start: 20090101

REACTIONS (8)
  - MOOD SWINGS [None]
  - SOMNOLENCE [None]
  - WEIGHT DECREASED [None]
  - MALAISE [None]
  - DYSMENORRHOEA [None]
  - AMENORRHOEA [None]
  - MENORRHAGIA [None]
  - VOMITING IN PREGNANCY [None]
